FAERS Safety Report 6888285-3 (Version None)
Quarter: 2010Q3

REPORT INFORMATION
  Report Type: 
  Country: None (occurrence: None)
  Receive Date: 20100730
  Receipt Date: 20100721
  Transmission Date: 20110219
  Serious: Yes (Hospitalization)
  Sender: FDA-Public Use
  Company Number: JP-BRISTOL-MYERS SQUIBB COMPANY-15133176

PATIENT
  Age: 63 Year
  Sex: Male

DRUGS (21)
  1. ABILIFY [Suspect]
     Indication: SCHIZOPHRENIA
     Dosage: 04NOV09: 12MG/D
     Route: 048
     Dates: start: 20091104, end: 20100422
  2. SEROQUEL [Suspect]
     Indication: SCHIZOPHRENIA
     Dosage: TABS
     Route: 048
     Dates: start: 20090101
  3. NORVASC [Concomitant]
     Dosage: NORVASC OD,TABS
     Dates: start: 20090101
  4. ZYLORIC [Concomitant]
     Dosage: TABS
     Dates: start: 20091101
  5. ASPIRIN [Concomitant]
     Dosage: TABS
     Dates: start: 20090101
  6. FERRUM [Concomitant]
     Dosage: CAPS
     Dates: start: 20091101
  7. FAMOTIDINE [Concomitant]
     Dosage: FAMOTIDINE D
     Dates: start: 20091101
  8. MAGMITT [Concomitant]
     Dosage: TABS
     Dates: start: 20091101
  9. KALIMATE [Concomitant]
     Dosage: TABS
     Dates: start: 20100201
  10. DEPAKENE [Concomitant]
     Dosage: TABS
     Dates: start: 20091101
  11. ROHYPNOL [Concomitant]
     Dosage: TABS
     Dates: start: 20091101
  12. ROHIPNOL [Concomitant]
     Dosage: TABS
     Dates: start: 20090101
  13. SALOBEL [Concomitant]
     Dates: start: 20090101
  14. FERROMIA [Concomitant]
     Dates: start: 20090101
  15. GASTER [Concomitant]
     Dates: start: 20090101
  16. FOLIAMIN [Concomitant]
     Dates: start: 20090101
  17. BLOPRESS [Concomitant]
     Dosage: TABLET
     Dates: start: 20090101
  18. ZYLORIC [Concomitant]
  19. MAGLAX [Concomitant]
     Dates: start: 20100113
  20. PURSENNID [Concomitant]
     Dates: start: 20100104
  21. BROTIZOLAM [Concomitant]
     Dates: start: 20090104

REACTIONS (3)
  - PNEUMONIA ASPIRATION [None]
  - PYREXIA [None]
  - WATER INTOXICATION [None]
